FAERS Safety Report 4618116-3 (Version None)
Quarter: 2005Q2

REPORT INFORMATION
  Report Type: 
  Country: None (occurrence: None)
  Receive Date: 20050316
  Receipt Date: 20041217
  Transmission Date: 20051028
  Serious: Yes (Hospitalization)
  Sender: FDA-Public Use
  Company Number: S04-USA-07866-01

PATIENT
  Age: 22 Year
  Sex: Female

DRUGS (8)
  1. LEXAPRO [Suspect]
     Indication: OBSESSIVE-COMPULSIVE DISORDER
     Dosage: 20 MG QD PO
     Route: 048
     Dates: start: 20041128, end: 20041201
  2. LEXAPRO [Suspect]
     Indication: POSTPARTUM DEPRESSION
     Dosage: 20 MG QD PO
     Route: 048
     Dates: start: 20041128, end: 20041201
  3. LEXAPRO [Suspect]
     Indication: OBSESSIVE-COMPULSIVE DISORDER
     Dosage: 10 MG QD PO
     Route: 048
     Dates: start: 20041028, end: 20041127
  4. LEXAPRO [Suspect]
     Indication: POSTPARTUM DEPRESSION
     Dosage: 10 MG QD PO
     Route: 048
     Dates: start: 20041028, end: 20041127
  5. KLONOPIN [Concomitant]
  6. ZOLOFT [Concomitant]
  7. PAXIL [Concomitant]
  8. TRAZODONE HCL [Concomitant]

REACTIONS (3)
  - AGGRESSION [None]
  - OEDEMA [None]
  - SUICIDAL IDEATION [None]
